FAERS Safety Report 24920273 (Version 1)
Quarter: 2025Q1

REPORT INFORMATION
  Report Type: Report from Study
  Country: US (occurrence: US)
  Receive Date: 20250204
  Receipt Date: 20250204
  Transmission Date: 20250409
  Serious: No
  Sender: EXELIXIS
  Company Number: US-EXELIXIS-CABO-24073523

PATIENT
  Sex: Male
  Weight: 95.692 kg

DRUGS (6)
  1. CABOMETYX [Suspect]
     Active Substance: CABOZANTINIB S-MALATE
     Indication: Prostate cancer
     Dosage: 40 MG, QD
     Route: 048
     Dates: start: 202401
  2. TRAMADOL [Concomitant]
     Active Substance: TRAMADOL
  3. DICLOFENAC [Concomitant]
     Active Substance: DICLOFENAC
  4. LIDOCAINE [Concomitant]
     Active Substance: LIDOCAINE
  5. AMLODIPINE [Concomitant]
     Active Substance: AMLODIPINE BESYLATE
  6. ONDANSETRON [Concomitant]
     Active Substance: ONDANSETRON

REACTIONS (1)
  - Off label use [Unknown]
